FAERS Safety Report 7740873-8 (Version None)
Quarter: 2011Q3

REPORT INFORMATION
  Report Type: 
  Country: None (occurrence: None)
  Receive Date: 20110909
  Receipt Date: 20110901
  Transmission Date: 20111222
  Serious: Yes (Hospitalization)
  Sender: FDA-Public Use
  Company Number: PHHY2011GB77941

PATIENT
  Age: 8 Year
  Sex: Female
  Weight: 16.8 kg

DRUGS (3)
  1. VALPROIC ACID [Suspect]
     Indication: GRAND MAL CONVULSION
     Dosage: 100 MG, BID
  2. VALPROIC ACID [Suspect]
     Dosage: 200 MG, BID
  3. CLONAZEPAM [Concomitant]
     Dosage: 0.25 MG, UNK

REACTIONS (8)
  - BONE DENSITY DECREASED [None]
  - HYPERCALCIURIA [None]
  - FEMUR FRACTURE [None]
  - FANCONI SYNDROME [None]
  - HYPERPHOSPHATAEMIA [None]
  - GLYCOSURIA [None]
  - BLOOD PHOSPHORUS DECREASED [None]
  - AMINOACIDURIA [None]
